FAERS Safety Report 8297250-3 (Version None)
Quarter: 2012Q2

REPORT INFORMATION
  Report Type: 
  Country: None (occurrence: None)
  Receive Date: 20120419
  Receipt Date: 20120409
  Transmission Date: 20120825
  Serious: Yes (Hospitalization)
  Sender: FDA-Public Use
  Company Number: US-JNJFOC-20120403923

PATIENT
  Sex: Female
  Weight: 68.04 kg

DRUGS (7)
  1. KLONOPIN [Concomitant]
     Route: 048
  2. DURAGESIC-100 [Suspect]
     Indication: PRODUCT USED FOR UNKNOWN INDICATION
     Route: 062
  3. LASIX [Concomitant]
     Indication: CARDIAC FAILURE CONGESTIVE
     Route: 048
  4. PLAVIX [Concomitant]
     Route: 048
  5. FENTANYL-100 [Suspect]
     Indication: PRODUCT USED FOR UNKNOWN INDICATION
     Route: 062
  6. DURAGESIC-100 [Suspect]
     Route: 062
  7. ABILIFY [Concomitant]
     Indication: SLEEP DISORDER
     Route: 048

REACTIONS (8)
  - APPLICATION SITE IRRITATION [None]
  - PRODUCT QUALITY ISSUE [None]
  - DRUG DOSE OMISSION [None]
  - DRUG ADMINISTERED AT INAPPROPRIATE SITE [None]
  - FIBROMYALGIA [None]
  - CARDIAC FAILURE CONGESTIVE [None]
  - PNEUMONIA [None]
  - SWELLING [None]
